FAERS Safety Report 4712056-7 (Version None)
Quarter: 2005Q2

REPORT INFORMATION
  Report Type: 
  Country: None (occurrence: None)
  Receive Date: 20050629
  Receipt Date: 20050407
  Transmission Date: 20051028
  Serious: No
  Sender: FDA-Public Use
  Company Number: 05P-163-0296897-00

PATIENT
  Age: 50 Year
  Sex: Female
  Weight: 114 kg

DRUGS (5)
  1. HUMIRA [Suspect]
     Indication: RHEUMATOID ARTHRITIS
     Dosage: 40 MG, 1 IN 2 WK, SUCUTANEOUS
     Route: 058
     Dates: start: 20030101
  2. PREDNISONE [Concomitant]
  3. BUPROPION HYDROCHLORIDE [Concomitant]
  4. TRAVEDONE [Concomitant]
  5. METHOTREXATE [Concomitant]

REACTIONS (1)
  - INFECTED SEBACEOUS CYST [None]
